FAERS Safety Report 15913311 (Version 1)
Quarter: 2019Q1

REPORT INFORMATION
  Report Type: Report from Study
  Country: US (occurrence: US)
  Receive Date: 20190204
  Receipt Date: 20190204
  Transmission Date: 20190417
  Serious: Yes (Hospitalization, Other)
  Sender: FDA-Public Use
  Company Number: US-MYLANLABS-2018M1097316

PATIENT

DRUGS (20)
  1. XOPENEX [Concomitant]
     Active Substance: LEVALBUTEROL HYDROCHLORIDE
     Indication: CYSTIC FIBROSIS LUNG
     Dosage: 45 MICROGRAM, PRN (STARTED PRIOR TO 2008)
     Route: 055
  2. MIRALAX [Concomitant]
     Active Substance: POLYETHYLENE GLYCOL 3350
     Indication: CONSTIPATION
     Dosage: 17 GRAM, PRN (STARTED PRIOR TO 2008)
     Route: 048
  3. CONCERTA [Concomitant]
     Active Substance: METHYLPHENIDATE HYDROCHLORIDE
     Indication: ATTENTION DEFICIT/HYPERACTIVITY DISORDER
     Dosage: 15 MILLIGRAM, QD
     Route: 048
     Dates: start: 20151119
  4. MELATONIN [Concomitant]
     Active Substance: MELATONIN
     Indication: INSOMNIA
     Dosage: 5 MILLIGRAM, PRN
     Route: 048
     Dates: start: 20090826
  5. CREON [Concomitant]
     Active Substance: PANCRELIPASE AMYLASE\PANCRELIPASE LIPASE\PANCRELIPASE PROTEASE
     Indication: PANCREATIC FAILURE
     Dosage: 9 DOSAGE FORM,AC (STARTED PRIOR 2008)
     Route: 048
  6. CHOLECALCIFEROL [Concomitant]
     Active Substance: CHOLECALCIFEROL
     Indication: VITAMIN D DEFICIENCY
     Dosage: 1 DOSAGE FORM, QW
     Route: 048
     Dates: start: 20131224
  7. PULMOZYME [Concomitant]
     Active Substance: DORNASE ALFA
     Indication: CYSTIC FIBROSIS LUNG
     Dosage: 2.5 MILLILITER, QD ((STARTED PRIOR TO 2008)
     Route: 055
  8. MONTELUKAST [Concomitant]
     Active Substance: MONTELUKAST SODIUM
     Indication: CYSTIC FIBROSIS LUNG
     Dosage: 10 MILLIGRAM, QD ((STARTED PRIOR TO 2008))
     Route: 048
  9. OMEPRAZOLE. [Concomitant]
     Active Substance: OMEPRAZOLE
     Indication: GASTROOESOPHAGEAL REFLUX DISEASE
     Dosage: 20 MILLIGRAM, BID (STARTED PRIOR TO 2008)
     Route: 048
  10. TOBI PODHALER [Suspect]
     Active Substance: TOBRAMYCIN
     Indication: INFECTIVE PULMONARY EXACERBATION OF CYSTIC FIBROSIS
  11. STRATTERA [Concomitant]
     Active Substance: ATOMOXETINE HYDROCHLORIDE
     Indication: ATTENTION DEFICIT/HYPERACTIVITY DISORDER
     Dosage: 36 MILLIGRAM, QD (STARTED BEFORE 2008)
     Route: 048
  12. MOMETASONE [Concomitant]
     Active Substance: MOMETASONE
     Indication: SINUSITIS
     Dosage: 1 DOSAGE FORM, BID ((STARTED PRIOR TO 2008))
     Route: 045
  13. LACTULOSE. [Concomitant]
     Active Substance: LACTULOSE
     Indication: CONSTIPATION
     Dosage: 20 MILLILITER, BID  (PRN) (STARTED PRIOR TO 2008)
     Route: 048
  14. ORKAMBI [Concomitant]
     Active Substance: IVACAFTOR\LUMACAFTOR
     Indication: CYSTIC FIBROSIS LUNG
     Dosage: 2 DOSAGE FORM, BID
     Route: 048
     Dates: start: 201509, end: 201803
  15. TOBI PODHALER [Suspect]
     Active Substance: TOBRAMYCIN
     Indication: INFECTIVE PULMONARY EXACERBATION OF CYSTIC FIBROSIS
     Dosage: 112 MILLIGRAM, BID
     Route: 055
     Dates: start: 20131004
  16. AQUADEKS                           /07679501/ [Concomitant]
     Active Substance: MINERALS\VITAMINS
     Indication: PANCREATIC FAILURE
     Dosage: 2 DOSAGE FORM, QD (STARTED PRIOR TO 2008)
     Route: 048
  17. HYPERTONIC SALINE SOLUTION [Concomitant]
     Active Substance: SODIUM CHLORIDE
     Indication: CYSTIC FIBROSIS LUNG
     Dosage: 4 MILLILITER, QOD
     Route: 055
  18. AZITHROMYCIN ANHYDROUS. [Concomitant]
     Active Substance: AZITHROMYCIN ANHYDROUS
     Indication: CYSTIC FIBROSIS LUNG
     Dosage: 500 MILLIGRAM, QD ((MONDAY, WEDNESDAY AND FRIDAY)) (BEFORE 2008))
     Route: 048
  19. PULMICORT TURBUHALER [Concomitant]
     Active Substance: BUDESONIDE
     Indication: CYSTIC FIBROSIS LUNG
     Dosage: 180 MICROGRAM, BID (STARTED BEFORE 2008)
     Route: 055
  20. CYPROHEPTADINE. [Concomitant]
     Active Substance: CYPROHEPTADINE
     Indication: SINUSITIS
     Dosage: 2 DOSAGE FORM, BID
     Route: 048
     Dates: start: 20081202

REACTIONS (8)
  - Pyrexia [Unknown]
  - Chest pain [Unknown]
  - Infective pulmonary exacerbation of cystic fibrosis [Recovered/Resolved]
  - Back pain [Unknown]
  - Dyspnoea [Unknown]
  - Pneumonia [Unknown]
  - Respiratory disorder [Unknown]
  - Pulmonary function test decreased [Recovered/Resolved]

NARRATIVE: CASE EVENT DATE: 20160907
